FAERS Safety Report 5308117-4 (Version None)
Quarter: 2007Q2

REPORT INFORMATION
  Report Type: 
  Country: None (occurrence: None)
  Receive Date: 20070423
  Receipt Date: 20070423
  Transmission Date: 20071010
  Serious: Yes (Life-Threatening)
  Sender: FDA-Public Use
  Company Number: None

PATIENT
  Age: 87 Year
  Sex: Male
  Weight: 62.2 kg

DRUGS (2)
  1. WARFARIN SODIUM [Suspect]
     Dosage: 7MG  WEEKLY  PO
     Route: 048
     Dates: start: 20011018, end: 20070412
  2. LEVOFLOXACIN [Suspect]
     Indication: URINARY TRACT INFECTION
     Dosage: 250MG  DAILY  IV DRIP
     Route: 041
     Dates: start: 20070412, end: 20070417

REACTIONS (6)
  - ANAL DISCOMFORT [None]
  - ANOREXIA [None]
  - INTERNATIONAL NORMALISED RATIO INCREASED [None]
  - ORAL INTAKE REDUCED [None]
  - RECTAL HAEMORRHAGE [None]
  - URINARY TRACT INFECTION [None]
